FAERS Safety Report 6040039-6 (Version None)
Quarter: 2009Q1

REPORT INFORMATION
  Report Type: 
  Country: None (occurrence: None)
  Receive Date: 20090116
  Receipt Date: 20071218
  Transmission Date: 20090719
  Serious: No
  Sender: FDA-Public Use
  Company Number: US-BRISTOL-MYERS SQUIBB COMPANY-13992458

PATIENT
  Age: 53 Year
  Sex: Male
  Weight: 85 kg

DRUGS (4)
  1. ABILIFY [Suspect]
     Indication: BIPOLAR DISORDER
     Route: 048
     Dates: start: 20061001
  2. KLONOPIN [Concomitant]
  3. LITHIUM CARBONATE [Concomitant]
  4. LEXAPRO [Concomitant]

REACTIONS (8)
  - ARTHRALGIA [None]
  - CHEILITIS [None]
  - FLATULENCE [None]
  - PALPITATIONS [None]
  - STOMATITIS [None]
  - STRESS URINARY INCONTINENCE [None]
  - URINARY INCONTINENCE [None]
  - WEIGHT INCREASED [None]
